FAERS Safety Report 19904367 (Version 4)
Quarter: 2021Q4

REPORT INFORMATION
  Report Type: Spontaneous
  Country: BG (occurrence: BG)
  Receive Date: 20210930
  Receipt Date: 20211206
  Transmission Date: 20220303
  Serious: Yes (Hospitalization, Other)
  Sender: FDA-Public Use
  Company Number: BG-SA-SAC20210927001267

PATIENT
  Age: 25 Year
  Sex: Female

DRUGS (1)
  1. FABRAZYME [Suspect]
     Active Substance: AGALSIDASE BETA
     Dosage: QOW

REACTIONS (5)
  - Road traffic accident [Unknown]
  - Craniocerebral injury [Unknown]
  - Pelvic fracture [Unknown]
  - Rib fracture [Unknown]
  - Medical induction of coma [Recovering/Resolving]

NARRATIVE: CASE EVENT DATE: 20210922
